FAERS Safety Report 8011005-6 (Version None)
Quarter: 2011Q4

REPORT INFORMATION
  Report Type: 
  Country: None (occurrence: None)
  Receive Date: 20111228
  Receipt Date: 20111220
  Transmission Date: 20120403
  Serious: Yes (Death)
  Sender: FDA-Public Use
  Company Number: SE-ROCHE-1025089

PATIENT
  Sex: Female

DRUGS (1)
  1. ACTIVASE [Suspect]
     Indication: CEREBRAL THROMBOSIS
     Route: 042
     Dates: start: 20110916, end: 20110916

REACTIONS (1)
  - CEREBRAL HAEMORRHAGE [None]
